FAERS Safety Report 16907571 (Version 2)
Quarter: 2019Q4

REPORT INFORMATION
  Report Type: Spontaneous
  Country: JP (occurrence: JP)
  Receive Date: 20191011
  Receipt Date: 20191111
  Transmission Date: 20200122
  Serious: Yes (Other)
  Sender: FDA-Public Use
  Company Number: JP-SAKK-2019SA279424AA

PATIENT
  Age: 82 Year
  Sex: Male

DRUGS (1)
  1. DOCETAXEL. [Suspect]
     Active Substance: DOCETAXEL
     Indication: SQUAMOUS CELL CARCINOMA OF SKIN
     Route: 041

REACTIONS (7)
  - Bone marrow failure [Unknown]
  - Condition aggravated [Unknown]
  - Lip erosion [Unknown]
  - Malaise [Unknown]
  - Pneumonia aspiration [Unknown]
  - Decreased appetite [Unknown]
  - Haemorrhage [Unknown]
